FAERS Safety Report 9121227 (Version 1)
Quarter: 2013Q1

REPORT INFORMATION
  Report Type: Spontaneous
  Country: US (occurrence: US)
  Receive Date: 20130225
  Receipt Date: 20130225
  Transmission Date: 20140127
  Serious: No
  Sender: FDA-Public Use
  Company Number: US-ENDO PHARMACEUTICALS INC.-FORT20120008

PATIENT
  Age: 56 Year
  Sex: Male
  Weight: 113.95 kg

DRUGS (16)
  1. FORTESTA [Suspect]
     Indication: HYPOGONADISM
     Route: 061
  2. FORTESTA [Suspect]
     Route: 061
     Dates: start: 201107
  3. TEKTURNA [Concomitant]
     Route: 048
  4. NORVASC [Concomitant]
     Route: 048
  5. ASPIRIN [Concomitant]
     Route: 048
  6. SYMBICORT [Concomitant]
     Dosage: UNKNOWN
  7. SINEMET [Concomitant]
     Dosage: 25-100 MG
     Route: 048
  8. CELEXA [Concomitant]
     Route: 048
  9. VALIUM [Concomitant]
     Route: 048
  10. GLUCOTROL [Concomitant]
     Route: 048
  11. PRINIVIL [Concomitant]
     Route: 048
  12. METFORMIN HCL [Concomitant]
     Route: 048
  13. BYSTOLIC [Concomitant]
     Route: 048
  14. VIAGRA [Concomitant]
     Route: 048
  15. DELATESTRYL [Concomitant]
     Route: 030
  16. DEMADEX [Concomitant]
     Route: 048

REACTIONS (2)
  - Inappropriate schedule of drug administration [Recovered/Resolved]
  - Application site rash [Recovered/Resolved]
